FAERS Safety Report 4477915-1 (Version None)
Quarter: 2004Q4

REPORT INFORMATION
  Report Type: 
  Country: None (occurrence: None)
  Receive Date: 20041018
  Receipt Date: 20041014
  Transmission Date: 20050328
  Serious: Yes (Hospitalization)
  Sender: FDA-Public Use
  Company Number: FR-MERCK-0410FRA00050

PATIENT
  Age: 73 Year
  Sex: Male

DRUGS (6)
  1. BECLOMETHASONE DIPROPIONATE [Concomitant]
     Indication: ASTHMA
     Route: 055
  2. BETAMETHASONE [Concomitant]
     Indication: ASTHMA
     Route: 048
  3. INSULIN [Concomitant]
     Indication: DIABETES MELLITUS INSULIN-DEPENDENT
     Route: 058
  4. LORATADINE [Concomitant]
     Indication: HYPERSENSITIVITY
     Route: 048
  5. VIOXX [Suspect]
     Indication: OSTEOARTHRITIS
     Route: 048
     Dates: start: 20010101, end: 20040930
  6. SALMETEROL XINAFOATE [Concomitant]
     Indication: ASTHMA
     Route: 055

REACTIONS (1)
  - TRANSIENT ISCHAEMIC ATTACK [None]
